FAERS Safety Report 6140520-5 (Version None)
Quarter: 2009Q1

REPORT INFORMATION
  Report Type: 
  Country: None (occurrence: None)
  Receive Date: 20090331
  Receipt Date: 20090324
  Transmission Date: 20090719
  Serious: Yes (Life-Threatening, Hospitalization)
  Sender: FDA-Public Use
  Company Number: WAES 0903USA04546

PATIENT
  Age: 68 Year
  Sex: Female
  Weight: 128.8216 kg

DRUGS (7)
  1. ZETIA [Suspect]
     Dosage: 10 MG/DAILY/PO
     Route: 048
  2. EXEMESTANE [Suspect]
     Indication: BREAST CANCER
     Dosage: 25 MG/DAILY/PO
     Route: 048
     Dates: start: 20060914
  3. DETROL LA [Suspect]
     Dosage: 4 MG/DAILY
  4. CALCIUM CARBONATE [Suspect]
     Dosage: 1250 MG/BID/PO
     Route: 048
  5. MEVACOR [Suspect]
     Dosage: 20 MG/DAILY/PO
     Route: 048
  6. ASPIRIN [Concomitant]
  7. VITAMIN D (UNSPECIFIED) [Concomitant]

REACTIONS (3)
  - ARTHRALGIA [None]
  - DEEP VEIN THROMBOSIS [None]
  - PULMONARY EMBOLISM [None]
